FAERS Safety Report 23251197 (Version 6)
Quarter: 2024Q1

REPORT INFORMATION
  Report Type: Spontaneous
  Country: US (occurrence: US)
  Receive Date: 20231201
  Receipt Date: 20240325
  Transmission Date: 20240409
  Serious: No
  Sender: FDA-Public Use
  Company Number: US-PFIZER INC-202300400775

PATIENT
  Age: 15 Year
  Sex: Male
  Weight: 72.562 kg

DRUGS (2)
  1. GENOTROPIN [Suspect]
     Active Substance: SOMATROPIN
     Indication: DiGeorge^s syndrome
     Dosage: 2.6 MG [ONCE IN THE EVENING FOR SIX DAYS] / 6 DAYS/WEEK
     Dates: start: 202311
  2. PROMACTA [Concomitant]
     Active Substance: ELTROMBOPAG OLAMINE
     Indication: Platelet disorder
     Dosage: UNK

REACTIONS (4)
  - Off label use [Unknown]
  - Device defective [Unknown]
  - Device malfunction [Unknown]
  - Device breakage [Unknown]

NARRATIVE: CASE EVENT DATE: 20231101
